FAERS Safety Report 11509715 (Version 2)
Quarter: 2015Q4

REPORT INFORMATION
  Report Type: Spontaneous
  Country: US (occurrence: US)
  Receive Date: 20150915
  Receipt Date: 20151013
  Transmission Date: 20160304
  Serious: No
  Sender: FDA-Public Use
  Company Number: US-JNJFOC-20150711979

PATIENT
  Age: 24 Month
  Sex: Female
  Weight: 13.61 kg

DRUGS (1)
  1. CHILDRENS TYLENOL [Suspect]
     Active Substance: ACETAMINOPHEN
     Indication: PYREXIA
     Dosage: MINIMAL AMOUNT
     Route: 048
     Dates: start: 20150713, end: 20150713

REACTIONS (3)
  - Infantile spitting up [Unknown]
  - Drug administered to patient of inappropriate age [Unknown]
  - Wrong technique in product usage process [Unknown]
